FAERS Safety Report 9634154 (Version 3)
Quarter: 2013Q4

REPORT INFORMATION
  Report Type: Spontaneous
  Country: FR (occurrence: FR)
  Receive Date: 20131021
  Receipt Date: 20131031
  Transmission Date: 20140711
  Serious: Yes (Hospitalization)
  Sender: FDA-Public Use
  Company Number: FR-PFIZER INC-2013295679

PATIENT
  Age: 53 Year
  Sex: Male

DRUGS (5)
  1. ADVIL [Suspect]
     Indication: TOOTHACHE
     Dosage: 400 MG, 3X/DAY
     Route: 048
     Dates: start: 20130909, end: 20130910
  2. TRAMADOL HYDROCHLORIDE [Suspect]
     Indication: TOOTHACHE
     Dosage: 100 MG (2 TABLETS) IN TOTAL
     Route: 048
     Dates: start: 20130909, end: 20130910
  3. PARACETAMOL [Suspect]
     Indication: TOOTHACHE
     Dosage: 7 G IN TOTAL
     Route: 048
     Dates: start: 20130909, end: 20130910
  4. IXPRIM [Suspect]
     Indication: TOOTHACHE
     Dosage: 2 DF IN TOTAL
     Route: 048
     Dates: start: 20130909, end: 20130910
  5. AMOXICILLIN [Concomitant]
     Indication: TOOTHACHE
     Dosage: 500 MG, SINGLE
     Route: 048
     Dates: start: 20130909, end: 20130909

REACTIONS (3)
  - Overdose [Recovered/Resolved]
  - Hepatitis [Recovering/Resolving]
  - Haematuria [Unknown]
